FAERS Safety Report 8878824 (Version 1)
Quarter: 2012Q4

REPORT INFORMATION
  Report Type: Report from Study
  Country: DE (occurrence: DE)
  Receive Date: 20121026
  Receipt Date: 20121026
  Transmission Date: 20130627
  Serious: Yes (Hospitalization, Other)
  Sender: FDA-Public Use
  Company Number: DE-BRISTOL-MYERS SQUIBB COMPANY-16898926

PATIENT
  Age: 71 Year
  Sex: Female
  Weight: 59 kg

DRUGS (9)
  1. PACLITAXEL [Suspect]
     Indication: BREAST CANCER
     Dosage: Last dose:03Jul2012(168mg,1 in 1 Wk)
Interrupted:10Jul2012.
     Route: 042
     Dates: start: 20120507
  2. CAPECITABINE [Suspect]
     Indication: BREAST CANCER
     Dosage: Last dose:18Jun2012(2000mg)
Interrupted:10Jul2012.
     Route: 065
     Dates: start: 20120507
  3. CONCOR PLUS [Concomitant]
  4. DELMUNO [Concomitant]
     Dates: start: 20120709
  5. METRONIDAZOLE [Concomitant]
     Dates: start: 20120709
  6. VOMEX A [Concomitant]
     Dates: start: 20120709
  7. SIMETICONE [Concomitant]
     Dates: start: 20120709
  8. LANSOPRAZOLE [Concomitant]
     Dates: start: 20120709
  9. NOVAMINSULFON [Concomitant]
     Dates: start: 20120709

REACTIONS (2)
  - Abdominal pain [Recovered/Resolved with Sequelae]
  - Ileus paralytic [Unknown]
